FAERS Safety Report 16066161 (Version 2)
Quarter: 2021Q1

REPORT INFORMATION
  Report Type: Spontaneous
  Country: US (occurrence: US)
  Receive Date: 20190313
  Receipt Date: 20210315
  Transmission Date: 20210419
  Serious: No
  Sender: FDA-Public Use
  Company Number: US-BRISTOL-MYERS SQUIBB COMPANY-BMS-2019-023328

PATIENT
  Sex: Male
  Weight: 96.6 kg

DRUGS (5)
  1. COUMADIN [Suspect]
     Active Substance: WARFARIN SODIUM
     Indication: PRODUCT USED FOR UNKNOWN INDICATION
     Dosage: UNK
     Route: 065
  2. ORENITRAM [Suspect]
     Active Substance: TREPROSTINIL
     Dosage: 10 MG/ML
     Route: 058
     Dates: start: 20190502
  3. ORENITRAM [Suspect]
     Active Substance: TREPROSTINIL
     Dosage: 0.04 MICROGRAM/KG
     Route: 058
  4. OPSUMIT [Suspect]
     Active Substance: MACITENTAN
     Indication: PRODUCT USED FOR UNKNOWN INDICATION
     Dosage: UNK
     Route: 065
  5. ORENITRAM [Suspect]
     Active Substance: TREPROSTINIL
     Indication: PULMONARY ARTERIAL HYPERTENSION
     Dosage: 10 MILLIGRAM, TID
     Route: 048
     Dates: start: 20190117

REACTIONS (21)
  - Dyspnoea [Unknown]
  - Pain in jaw [Unknown]
  - Palpitations [Unknown]
  - Decreased appetite [Unknown]
  - Somnolence [Unknown]
  - Poor quality sleep [Unknown]
  - Sleep apnoea syndrome [Unknown]
  - Haemoptysis [Unknown]
  - Infusion site haemorrhage [Unknown]
  - Productive cough [Unknown]
  - Fatigue [Unknown]
  - Headache [Unknown]
  - Eye pain [Unknown]
  - Nasopharyngitis [Unknown]
  - Bronchitis viral [Unknown]
  - Insomnia [Unknown]
  - Eating disorder [Unknown]
  - Asthenia [Unknown]
  - Oxygen saturation decreased [Unknown]
  - Decreased interest [Unknown]
  - Nausea [Unknown]
